FAERS Safety Report 7591382-0 (Version None)
Quarter: 2011Q3

REPORT INFORMATION
  Report Type: 
  Country: None (occurrence: None)
  Receive Date: 20110706
  Receipt Date: 20110622
  Transmission Date: 20111222
  Serious: Yes (Other)
  Sender: FDA-Public Use
  Company Number: US-AMGEN-USASP2011032044

PATIENT
  Age: 43 Year
  Sex: Female

DRUGS (3)
  1. ENBREL [Suspect]
     Indication: PSORIATIC ARTHROPATHY
  2. METHOTREXATE [Concomitant]
     Dates: start: 20070101
  3. ENBREL [Suspect]
     Indication: PSORIASIS
     Dosage: 50 MG, QWK
     Dates: start: 20071113, end: 20110530

REACTIONS (9)
  - CONTUSION [None]
  - ACCIDENT [None]
  - EXCORIATION [None]
  - OEDEMA PERIPHERAL [None]
  - INJECTION SITE IRRITATION [None]
  - PSORIATIC ARTHROPATHY [None]
  - OPEN WOUND [None]
  - PSORIASIS [None]
  - RIB FRACTURE [None]
